FAERS Safety Report 9788583 (Version 4)
Quarter: 2014Q2

REPORT INFORMATION
  Report Type: Spontaneous
  Country: JP (occurrence: JP)
  Receive Date: 20131230
  Receipt Date: 20140611
  Transmission Date: 20141212
  Serious: Yes (Death, Life-Threatening)
  Sender: FDA-Public Use
  Company Number: PHHY2013JP152939

PATIENT
  Age: 83 Year
  Sex: Female

DRUGS (8)
  1. RIVASTIGMIN [Suspect]
     Indication: DEMENTIA ALZHEIMER^S TYPE
     Dosage: 1.9 MG/24 HOURS (4.5 MG DAILY)
     Route: 062
     Dates: start: 20131101, end: 20131127
  2. RIVASTIGMIN [Suspect]
     Dosage: 4.6 MG/24 HOURS (9 MG DAILY)
     Route: 062
     Dates: start: 20131128, end: 20131218
  3. PREDONINE [Concomitant]
     Dosage: UNK UKN, UNK
     Dates: start: 20131121, end: 20131220
  4. AMLODIN [Concomitant]
     Dosage: UNK UKN, UNK
     Dates: start: 20130921, end: 20131220
  5. LASIX [Concomitant]
     Dosage: UNK UKN, UNK
     Dates: start: 20130921, end: 20131220
  6. TAKEPRON [Concomitant]
     Dosage: UNK UKN, UNK
     Dates: start: 20130921, end: 20131220
  7. BAKTAR [Concomitant]
     Dosage: UNK UKN, UNK
     Dates: start: 20130921, end: 20131220
  8. PANPYOTIN [Concomitant]
     Dosage: UNK UKN, UNK
     Dates: start: 20130921, end: 20131220

REACTIONS (3)
  - Pneumonia [Fatal]
  - Altered state of consciousness [Unknown]
  - Headache [Unknown]
